FAERS Safety Report 25310705 (Version 1)
Quarter: 2025Q2

REPORT INFORMATION
  Report Type: Spontaneous
  Country: FR (occurrence: FR)
  Receive Date: 20250514
  Receipt Date: 20250514
  Transmission Date: 20250716
  Serious: Yes (Hospitalization)
  Sender: NOVO NORDISK
  Company Number: None

PATIENT
  Age: 78 Year
  Sex: Male
  Weight: 107.5 kg

DRUGS (1)
  1. VICTOZA [Suspect]
     Active Substance: LIRAGLUTIDE
     Indication: Type 2 diabetes mellitus
     Dosage: 1.8 MG, QD
     Route: 058
     Dates: start: 20250116, end: 20250313

REACTIONS (2)
  - Cholangitis [Recovering/Resolving]
  - Cholecystitis [Recovering/Resolving]

NARRATIVE: CASE EVENT DATE: 20250310
